FAERS Safety Report 8504295-4 (Version None)
Quarter: 2012Q3

REPORT INFORMATION
  Report Type: 
  Country: None (occurrence: None)
  Receive Date: 20120711
  Receipt Date: 20120703
  Transmission Date: 20120928
  Serious: Yes (Hospitalization)
  Sender: FDA-Public Use
  Company Number: US-US-EMD SERONO, INC.-7145795

PATIENT
  Sex: Female

DRUGS (2)
  1. REBIF [Suspect]
     Indication: PRODUCT USED FOR UNKNOWN INDICATION
     Route: 058
     Dates: start: 20101124
  2. EXCEDRIN (MIGRAINE) [Suspect]
     Indication: NASAL CONGESTION

REACTIONS (7)
  - INJECTION SITE ERYTHEMA [None]
  - SINUSITIS [None]
  - NASAL CONGESTION [None]
  - LOSS OF CONSCIOUSNESS [None]
  - ADVERSE DRUG REACTION [None]
  - VOMITING [None]
  - PARANOIA [None]
